FAERS Safety Report 9458718 (Version 1)
Quarter: 2013Q3

REPORT INFORMATION
  Report Type: Spontaneous
  Country: CN (occurrence: CN)
  Receive Date: 20130814
  Receipt Date: 20130814
  Transmission Date: 20140515
  Serious: Yes (Other)
  Sender: FDA-Public Use
  Company Number: CN-ROCHE-1260119

PATIENT
  Age: 69 Year
  Sex: Female

DRUGS (4)
  1. XELODA [Suspect]
     Indication: RECTAL CANCER
     Route: 048
     Dates: start: 2012, end: 201208
  2. XELODA [Suspect]
     Route: 048
     Dates: start: 201307
  3. GIMERACIL [Suspect]
     Indication: RECTAL CANCER
     Route: 048
     Dates: start: 201212, end: 201303
  4. OTERACIL POTASSIUM [Suspect]
     Indication: RECTAL CANCER
     Route: 048
     Dates: start: 201212, end: 201303

REACTIONS (5)
  - Metastases to pelvis [Unknown]
  - Metastases to lung [Unknown]
  - Metastases to lymph nodes [Unknown]
  - Somnolence [Not Recovered/Not Resolved]
  - Drug ineffective [Unknown]
